FAERS Safety Report 4895512-0 (Version None)
Quarter: 2006Q1

REPORT INFORMATION
  Report Type: 
  Country: None (occurrence: None)
  Receive Date: 20060130
  Receipt Date: 20060118
  Transmission Date: 20060701
  Serious: Yes (Hospitalization)
  Sender: FDA-Public Use
  Company Number: FR-SANOFI-SYNTHELABO-A01200600381

PATIENT
  Age: 78 Year
  Sex: Male
  Weight: 63 kg

DRUGS (4)
  1. PLAVIX [Suspect]
     Indication: ILL-DEFINED DISORDER
     Route: 048
  2. APROVEL [Suspect]
     Indication: ILL-DEFINED DISORDER
     Route: 048
  3. TAHOR [Suspect]
     Indication: ILL-DEFINED DISORDER
     Route: 048
     Dates: start: 20050111, end: 20051025
  4. PURINETHOL [Suspect]
     Indication: THROMBOCYTHAEMIA
     Route: 048
     Dates: start: 20040401, end: 20051025

REACTIONS (8)
  - ALANINE AMINOTRANSFERASE INCREASED [None]
  - ANOREXIA [None]
  - ASPARTATE AMINOTRANSFERASE INCREASED [None]
  - BILIRUBIN CONJUGATED INCREASED [None]
  - BLOOD ALKALINE PHOSPHATASE INCREASED [None]
  - BLOOD BILIRUBIN INCREASED [None]
  - GAMMA-GLUTAMYLTRANSFERASE INCREASED [None]
  - JAUNDICE [None]
